FAERS Safety Report 7200101-9 (Version None)
Quarter: 2010Q4

REPORT INFORMATION
  Report Type: 
  Country: None (occurrence: None)
  Receive Date: 20101228
  Receipt Date: 20101221
  Transmission Date: 20110411
  Serious: Yes (Hospitalization)
  Sender: FDA-Public Use
  Company Number: CA-JNJFOC-20101208248

PATIENT
  Sex: Female
  Weight: 83 kg

DRUGS (3)
  1. REMICADE [Suspect]
     Indication: ANKYLOSING SPONDYLITIS
     Route: 042
  2. BENADRYL [Concomitant]
     Indication: PREMEDICATION
     Dosage: PRIOR TO INFUSION
     Route: 048
  3. METFORMIN [Concomitant]
     Indication: DIABETES MELLITUS

REACTIONS (4)
  - BACK PAIN [None]
  - INFLAMMATION [None]
  - SPINAL DISORDER [None]
  - WALKING AID USER [None]
